FAERS Safety Report 7787260-4 (Version None)
Quarter: 2011Q3

REPORT INFORMATION
  Report Type: 
  Country: None (occurrence: None)
  Receive Date: 20110929
  Receipt Date: 20101014
  Transmission Date: 20111222
  Serious: Yes (Other)
  Sender: FDA-Public Use
  Company Number: US-BAYER-201023011NA

PATIENT
  Age: 33 Year
  Sex: Female
  Weight: 49 kg

DRUGS (6)
  1. YAZ [Suspect]
     Indication: ENDOMETRIOSIS
     Dosage: UNK
     Dates: start: 20000101, end: 20090101
  2. ALLEGRA [Concomitant]
  3. RESTASIS [Concomitant]
  4. YASMIN [Suspect]
     Indication: ENDOMETRIOSIS
     Route: 048
     Dates: start: 20030601, end: 20080701
  5. MULTI-VITAMINS [Concomitant]
  6. MIRALAX [Concomitant]
     Indication: CONSTIPATION

REACTIONS (3)
  - CHOLECYSTITIS CHRONIC [None]
  - BILIARY DYSKINESIA [None]
  - GALLBLADDER DISORDER [None]
